FAERS Safety Report 11653560 (Version 2)
Quarter: 2015Q4

REPORT INFORMATION
  Report Type: Spontaneous
  Country: US (occurrence: None)
  Receive Date: 20151022
  Receipt Date: 20151026
  Transmission Date: 20160304
  Serious: No
  Sender: FDA-Public Use
  Company Number: US-MDT-ADR-2015-01999

PATIENT
  Age: 52 Year
  Sex: Male

DRUGS (2)
  1. FENTANYL INTRATHECAL [Suspect]
     Active Substance: FENTANYL
     Indication: PAIN
  2. BACLOFEN INTRATHECAL [Suspect]
     Active Substance: BACLOFEN
     Indication: PAIN

REACTIONS (2)
  - Pain [None]
  - No therapeutic response [None]
